FAERS Safety Report 4418601-3 (Version None)
Quarter: 2004Q3

REPORT INFORMATION
  Report Type: 
  Country: None (occurrence: None)
  Receive Date: 20040809
  Receipt Date: 20030604
  Transmission Date: 20050211
  Serious: No
  Sender: FDA-Public Use
  Company Number: US-GLAXOSMITHKLINE-A0410815A

PATIENT
  Age: 68 Year
  Sex: Female

DRUGS (5)
  1. PAXIL [Suspect]
     Indication: DEPRESSION
     Route: 048
     Dates: start: 20030602, end: 20030603
  2. LIBRIUM [Concomitant]
  3. CHLORDIAZEPOXIDE [Concomitant]
  4. FEMHRT [Concomitant]
  5. IBUPROFEN [Concomitant]

REACTIONS (7)
  - ASTHENIA [None]
  - BEDRIDDEN [None]
  - BLOOD CHOLESTEROL INCREASED [None]
  - MENTAL IMPAIRMENT [None]
  - NAUSEA [None]
  - SOMNOLENCE [None]
  - VOMITING [None]
